FAERS Safety Report 10469154 (Version 1)
Quarter: 2014Q3

REPORT INFORMATION
  Report Type: Spontaneous
  Country: FR (occurrence: None)
  Receive Date: 20140919
  Receipt Date: 20140919
  Transmission Date: 20150326
  Serious: Yes (Disabling)
  Sender: FDA-Public Use
  Company Number: AXC-2014-000559

PATIENT
  Age: 52 Year
  Sex: Female
  Weight: 73 kg

DRUGS (13)
  1. VENTOLIN [Concomitant]
     Active Substance: ALBUTEROL SULFATE
  2. MONTELUKAST SODIUM. [Concomitant]
     Active Substance: MONTELUKAST SODIUM
  3. MOPRAL [Concomitant]
     Active Substance: OMEPRAZOLE SODIUM
  4. SEROPLEX [Concomitant]
     Active Substance: ESCITALOPRAM OXALATE
  5. XANAX [Concomitant]
     Active Substance: ALPRAZOLAM
  6. ALLERGODIL [Concomitant]
     Active Substance: AZELASTINE
  7. SERETIDE [Concomitant]
     Active Substance: FLUTICASONE FUROATE\SALMETEROL XINAFOATE
  8. CROMEDIL [Concomitant]
  9. ZADITEN [Concomitant]
     Active Substance: KETOTIFEN FUMARATE
  10. PYLERA [Suspect]
     Active Substance: BISMUTH SUBCITRATE POTASSIUM\METRONIDAZOLE\TETRACYCLINE HYDROCHLORIDE
     Indication: HELICOBACTER INFECTION
     Dosage: 3 DF, QID,ORAL
     Dates: start: 20140217, end: 20140224
  11. REFRESH OPTIVE [Concomitant]
     Active Substance: CARBOXYMETHYLCELLULOSE SODIUM\GLYCERIN
  12. ZOPICLONE [Concomitant]
     Active Substance: ZOPICLONE
  13. NOMEGESTROL ACETATE [Concomitant]
     Active Substance: NOMEGESTROL ACETATE

REACTIONS (7)
  - Vertigo [None]
  - Headache [None]
  - Neck pain [None]
  - Muscular weakness [None]
  - Pain [None]
  - Constipation [None]
  - Generalised oedema [None]

NARRATIVE: CASE EVENT DATE: 20140224
